FAERS Safety Report 8355992-5 (Version None)
Quarter: 2012Q2

REPORT INFORMATION
  Report Type: 
  Country: None (occurrence: None)
  Receive Date: 20120514
  Receipt Date: 20120502
  Transmission Date: 20120825
  Serious: Yes (Other)
  Sender: FDA-Public Use
  Company Number: US-JNJFOC-20120503726

PATIENT
  Sex: Female
  Weight: 72.58 kg

DRUGS (1)
  1. REMICADE [Suspect]
     Indication: ANKYLOSING SPONDYLITIS
     Route: 042

REACTIONS (7)
  - SWELLING FACE [None]
  - EYE PRURITUS [None]
  - URTICARIA [None]
  - COMPLEMENT FACTOR DECREASED [None]
  - SKIN FISSURES [None]
  - EYE SWELLING [None]
  - SEASONAL ALLERGY [None]
